FAERS Safety Report 20962754 (Version 1)
Quarter: 2022Q2

REPORT INFORMATION
  Report Type: Spontaneous
  Country: US (occurrence: US)
  Receive Date: 20220615
  Receipt Date: 20220615
  Transmission Date: 20220721
  Serious: No
  Sender: FDA-Public Use
  Company Number: US-BTGSP-US-BTGSP-21-0163

PATIENT
  Age: 23 Year
  Sex: Male
  Weight: 81 kg

DRUGS (11)
  1. VORAXAZE [Suspect]
     Active Substance: GLUCARPIDASE
     Indication: Toxicity to various agents
     Dosage: 2000 UNITS (2 VIALS)
     Route: 065
     Dates: start: 20211014, end: 20211014
  2. PONATINIB [Concomitant]
     Active Substance: PONATINIB
     Indication: Chemotherapy
     Dosage: 30 MILLIGRAM
     Route: 065
     Dates: end: 20211013
  3. PONATINIB [Concomitant]
     Active Substance: PONATINIB
     Dosage: 30 MILLIGRAM
     Route: 066
     Dates: end: 20211031
  4. LEUCOVORIN [Concomitant]
     Active Substance: LEUCOVORIN
     Indication: Toxicity to various agents
     Dosage: 1000 MILLIGRAM/SQ. METER, Q6H
     Route: 042
     Dates: start: 20211014, end: 20211024
  5. LEUCOVORIN [Concomitant]
     Active Substance: LEUCOVORIN
     Dosage: 200 MILLIGRAM/SQ. METER
     Route: 042
     Dates: start: 20211025, end: 20211030
  6. LEUCOVORIN [Concomitant]
     Active Substance: LEUCOVORIN
     Dosage: 30 MILLIGRAM
     Route: 048
     Dates: start: 20211031, end: 20211128
  7. LEUCOVORIN [Concomitant]
     Active Substance: LEUCOVORIN
     Dosage: UNK
     Route: 065
     Dates: start: 20211014
  8. LEUCOVORIN [Concomitant]
     Active Substance: LEUCOVORIN
     Dosage: 1000 MILLIGRAM/SQ. METER, Q6H
     Route: 042
     Dates: start: 20211014, end: 20211024
  9. CIPRO [Concomitant]
     Active Substance: CIPROFLOXACIN HYDROCHLORIDE
     Indication: Antibiotic therapy
     Dosage: 500 MILLIGRAM, BID
     Route: 065
     Dates: end: 20211014
  10. CHOLESTYRAMINE [Concomitant]
     Active Substance: CHOLESTYRAMINE
     Indication: Toxicity to various agents
     Dosage: 1.33 GRAM, TID
     Route: 065
     Dates: start: 20211025, end: 20211105
  11. METHOTREXATE [Concomitant]
     Active Substance: METHOTREXATE
     Indication: Acute lymphocytic leukaemia
     Dosage: 5 G/M2
     Route: 041

REACTIONS (4)
  - Off label use [Unknown]
  - Underdose [Unknown]
  - No adverse event [Unknown]
  - Laboratory test interference [Unknown]

NARRATIVE: CASE EVENT DATE: 20211013
